FAERS Safety Report 9010201 (Version 1)
Quarter: 2013Q1

REPORT INFORMATION
  Report Type: Spontaneous
  Country: US (occurrence: US)
  Receive Date: 20130110
  Receipt Date: 20130110
  Transmission Date: 20140127
  Serious: Yes (Other)
  Sender: FDA-Public Use
  Company Number: US-BAYER-2013-001643

PATIENT
  Age: 43 Year
  Sex: Female
  Weight: 79.37 kg

DRUGS (3)
  1. YAZ [Suspect]
  2. CELEXA [Concomitant]
     Indication: ANXIETY
     Dosage: 20 MG, DAILY
  3. CELEXA [Concomitant]
     Indication: ANXIETY
     Dosage: 1.5 TABLETS DAILY

REACTIONS (1)
  - Deep vein thrombosis [Recovered/Resolved]
